FAERS Safety Report 9624601 (Version 2)
Quarter: 2013Q4

REPORT INFORMATION
  Report Type: Spontaneous
  Country: FR (occurrence: FR)
  Receive Date: 20131015
  Receipt Date: 20131015
  Transmission Date: 20140711
  Serious: Yes (Hospitalization)
  Sender: FDA-Public Use
  Company Number: FR-TEVA-327732ISR

PATIENT
  Age: 60 Year
  Sex: Male

DRUGS (5)
  1. AZILECT [Suspect]
     Indication: PARKINSON^S DISEASE
     Dosage: 1 MILLIGRAM DAILY;
     Route: 048
     Dates: start: 20111121, end: 20120122
  2. STALEVO 150MG/37.5MG/200MG [Suspect]
     Indication: PARKINSON^S DISEASE
     Dosage: 5 DOSAGE FORMS DAILY; 1 DF = LEVODOPA 150MG, CARBIDOPA37.5MG, ENTACAPONE 200MG
     Route: 048
     Dates: start: 2010
  3. ALDACTONE [Concomitant]
     Indication: HYPERTENSION
  4. ZOXAN LP [Concomitant]
  5. RIVOTRIL [Concomitant]

REACTIONS (11)
  - Subileus [Recovered/Resolved]
  - Obsessive-compulsive disorder [Not Recovered/Not Resolved]
  - Conjunctivitis [Unknown]
  - Mental disorder [Not Recovered/Not Resolved]
  - C-reactive protein increased [Unknown]
  - Dehydration [Unknown]
  - Pyrexia [Unknown]
  - Arthralgia [Unknown]
  - General physical health deterioration [Unknown]
  - Dyskinesia [Recovered/Resolved]
  - Vertigo [Recovered/Resolved]
